FAERS Safety Report 5505934-2 (Version None)
Quarter: 2007Q4

REPORT INFORMATION
  Report Type: 
  Country: None (occurrence: None)
  Receive Date: 20071103
  Receipt Date: 20071025
  Transmission Date: 20080405
  Serious: Yes (Hospitalization, Other)
  Sender: FDA-Public Use
  Company Number: US-ELI_LILLY_AND_COMPANY-US200710006325

PATIENT
  Sex: Female

DRUGS (6)
  1. FORTEO [Suspect]
     Indication: OSTEOPOROSIS
     Dates: start: 20070501
  2. NIFEDIPINE [Concomitant]
  3. COUMADIN [Concomitant]
  4. ARICEPT [Concomitant]
  5. METOPROLOL [Concomitant]
  6. AVAPRO [Concomitant]

REACTIONS (2)
  - CEREBROVASCULAR ACCIDENT [None]
  - FOREIGN BODY ASPIRATION [None]
